FAERS Safety Report 5106951-7 (Version None)
Quarter: 2006Q3

REPORT INFORMATION
  Report Type: 
  Country: None (occurrence: None)
  Receive Date: 20060913
  Receipt Date: 20060907
  Transmission Date: 20061208
  Serious: Yes (Other)
  Sender: FDA-Public Use
  Company Number: 147391USA

PATIENT
  Sex: Male

DRUGS (1)
  1. MERCAPTOPURINE [Suspect]
     Indication: INFLAMMATORY BOWEL DISEASE

REACTIONS (2)
  - BRAIN NEOPLASM MALIGNANT [None]
  - LEUKOPENIA [None]
